FAERS Safety Report 11811707 (Version 1)
Quarter: 2015Q4

REPORT INFORMATION
  Report Type: Spontaneous
  Country: US (occurrence: US)
  Receive Date: 20151208
  Receipt Date: 20151208
  Transmission Date: 20160305
  Serious: No
  Sender: FDA-Public Use
  Company Number: US-TARO-2015TAR00006

PATIENT
  Sex: Female

DRUGS (1)
  1. FLUOROURACIL TOPICAL SOLUTION USP 5% [Suspect]
     Active Substance: FLUOROURACIL
     Indication: ACTINIC KERATOSIS
     Dosage: UNK %, UNK
     Route: 061
     Dates: start: 201412

REACTIONS (1)
  - Application site discolouration [Unknown]
